FAERS Safety Report 4357223-X (Version None)
Quarter: 2004Q2

REPORT INFORMATION
  Report Type: 
  Country: None (occurrence: None)
  Receive Date: 20040512
  Receipt Date: 20040512
  Transmission Date: 20050107
  Serious: Yes (Other)
  Sender: FDA-Public Use
  Company Number: None

PATIENT
  Age: 18 Month
  Sex: Male

DRUGS (1)
  1. PENICILLIN [Suspect]
     Indication: TONSILLITIS
     Dosage: 25MG/5ML 1 TAB PO BID F 10 DAYS
     Route: 048
     Dates: start: 20040220, end: 20040225

REACTIONS (1)
  - RASH GENERALISED [None]
